FAERS Safety Report 9520059 (Version 1)
Quarter: 2013Q1

REPORT INFORMATION
  Report Type: Spontaneous
  Country: US (occurrence: None)
  Receive Date: 20130305
  Receipt Date: 20130305
  Transmission Date: 20140127
  Serious: Yes (Other)
  Sender: FDA-Public Use
  Company Number: 163-21880-12082679

PATIENT
  Age: 74 Year
  Sex: Female
  Weight: 61.24 kg

DRUGS (1)
  1. REVLIMID [Suspect]
     Indication: PLASMA CELL MYELOMA
     Route: 048
     Dates: start: 201007

REACTIONS (4)
  - Blood pressure increased [None]
  - Headache [None]
  - Tremor [None]
  - Neurological symptom [None]
